FAERS Safety Report 19034717 (Version 1)
Quarter: 2021Q1

REPORT INFORMATION
  Report Type: Spontaneous
  Country: NL (occurrence: NL)
  Receive Date: 20210319
  Receipt Date: 20210319
  Transmission Date: 20210420
  Serious: Yes (Death)
  Sender: FDA-Public Use
  Company Number: NL-ROCHE-2788378

PATIENT
  Age: 69 Year
  Sex: Female
  Weight: 65 kg

DRUGS (3)
  1. TRASTUZUMAB. [Concomitant]
     Active Substance: TRASTUZUMAB
     Dosage: IV 650 MG
     Route: 065
  2. CAPECITABINE. [Suspect]
     Active Substance: CAPECITABINE
     Indication: BREAST CANCER
     Route: 048
     Dates: start: 20210107, end: 20210118
  3. PERTUZUMAB. [Concomitant]
     Active Substance: PERTUZUMAB

REACTIONS (3)
  - Gastrointestinal inflammation [Fatal]
  - Diarrhoea [Fatal]
  - Stomatitis [Fatal]

NARRATIVE: CASE EVENT DATE: 20210114
